FAERS Safety Report 6080419-6 (Version None)
Quarter: 2009Q1

REPORT INFORMATION
  Report Type: 
  Country: None (occurrence: None)
  Receive Date: 20090217
  Receipt Date: 20090209
  Transmission Date: 20090719
  Serious: Yes (Hospitalization, Other)
  Sender: FDA-Public Use
  Company Number: PHBS2009IN00777

PATIENT
  Age: 25 Year
  Sex: Female

DRUGS (2)
  1. CARBAMAZEPINE [Interacting]
     Indication: BIPOLAR DISORDER
  2. LITHIUM CARBONATE [Suspect]
     Indication: BIPOLAR DISORDER
     Dosage: 800 MG/DAY

REACTIONS (16)
  - ALTERED STATE OF CONSCIOUSNESS [None]
  - ANTIPSYCHOTIC DRUG LEVEL INCREASED [None]
  - ATAXIA [None]
  - BLOOD CALCIUM DECREASED [None]
  - BLOOD CREATININE INCREASED [None]
  - BLOOD UREA INCREASED [None]
  - DEHYDRATION [None]
  - DYSARTHRIA [None]
  - GRAND MAL CONVULSION [None]
  - HEART RATE INCREASED [None]
  - HYPOTENSION [None]
  - LEUKOCYTOSIS [None]
  - MUSCLE RIGIDITY [None]
  - NYSTAGMUS [None]
  - TETANY [None]
  - TREMOR [None]
